FAERS Safety Report 4647038-7 (Version None)
Quarter: 2005Q2

REPORT INFORMATION
  Report Type: 
  Country: None (occurrence: None)
  Receive Date: 20050331
  Receipt Date: 20050203
  Transmission Date: 20051028
  Serious: No
  Sender: FDA-Public Use
  Company Number: 05P-163-0289529

PATIENT
  Age: 77 Year
  Sex: Female
  Weight: 68.0396 kg

DRUGS (4)
  1. HUMIRA [Suspect]
     Indication: RHEUMATOID ARTHRITIS
     Dosage: 40 MG, 1 IN 1 WK, SUBCUTANEOUS, 40 MG 1 IN 2 WK SUBCUTANEOUS
     Route: 058
     Dates: start: 20040401, end: 20040601
  2. HUMIRA [Suspect]
     Indication: RHEUMATOID ARTHRITIS
     Dosage: 40 MG, 1 IN 1 WK, SUBCUTANEOUS, 40 MG 1 IN 2 WK SUBCUTANEOUS
     Route: 058
     Dates: start: 20040601
  3. METHOTREXATE SODIUM [Concomitant]
  4. METHYLPREDNISOLONE 16MG TAB [Concomitant]

REACTIONS (2)
  - ANTIPHOSPHOLIPID ANTIBODIES POSITIVE [None]
  - RED BLOOD CELL SEDIMENTATION RATE INCREASED [None]
